FAERS Safety Report 4291275-0 (Version None)
Quarter: 2004Q1

REPORT INFORMATION
  Report Type: 
  Country: None (occurrence: None)
  Receive Date: 20040211
  Receipt Date: 20031201
  Transmission Date: 20041129
  Serious: No
  Sender: FDA-Public Use
  Company Number: US-GLAXOSMITHKLINE-A0441464A

PATIENT
  Age: 68 Year
  Sex: Male

DRUGS (7)
  1. PAXIL [Suspect]
     Indication: DEPRESSION
     Dosage: 20MG PER DAY
     Route: 048
     Dates: start: 19990101, end: 20030101
  2. COUMADIN [Concomitant]
  3. LANOXIN [Concomitant]
  4. NORVASC [Concomitant]
  5. KYTRIL [Concomitant]
     Route: 065
  6. ATENOLOL [Concomitant]
  7. DIOVAN [Concomitant]

REACTIONS (1)
  - SEXUAL DYSFUNCTION [None]
